FAERS Safety Report 21805039 (Version 2)
Quarter: 2023Q1

REPORT INFORMATION
  Report Type: Spontaneous
  Country: US (occurrence: None)
  Receive Date: 20230102
  Receipt Date: 20230221
  Transmission Date: 20230418
  Serious: Yes (Hospitalization)
  Sender: FDA-Public Use
  Company Number: US-Merck Healthcare KGaA-9375355

PATIENT
  Sex: Female

DRUGS (1)
  1. REBIF [Suspect]
     Active Substance: INTERFERON BETA-1A
     Indication: Multiple sclerosis
     Dosage: STRENGTH: 44MCG/0.5 ML, REBIF PREFILLED SYRINGE.
     Route: 058
     Dates: start: 201401

REACTIONS (2)
  - Hypervolaemia [Unknown]
  - Multiple sclerosis relapse [Unknown]
